FAERS Safety Report 14278562 (Version 1)
Quarter: 2017Q4

REPORT INFORMATION
  Report Type: Spontaneous
  Country: US (occurrence: US)
  Receive Date: 20171211
  Receipt Date: 20171211
  Transmission Date: 20180321
  Serious: Yes (Hospitalization, Other)
  Sender: FDA-Public Use
  Company Number: US-OTSUKA-DJ201403206

PATIENT

DRUGS (1)
  1. ABILIFY [Suspect]
     Active Substance: ARIPIPRAZOLE
     Indication: BIPOLAR DISORDER
     Route: 048
     Dates: start: 200910, end: 201112

REACTIONS (4)
  - Restlessness [Recovered/Resolved]
  - Pain in extremity [Not Recovered/Not Resolved]
  - Weight increased [Not Recovered/Not Resolved]
  - Judgement impaired [Unknown]

NARRATIVE: CASE EVENT DATE: 200910
